FAERS Safety Report 20770107 (Version 2)
Quarter: 2022Q3

REPORT INFORMATION
  Report Type: Report from Study
  Country: US (occurrence: US)
  Receive Date: 20220429
  Receipt Date: 20220706
  Transmission Date: 20221026
  Serious: Yes (Other)
  Sender: FDA-Public Use
  Company Number: US-JNJFOC-20220446958

PATIENT
  Age: 25 Year
  Sex: Female
  Weight: 53.572 kg

DRUGS (3)
  1. INFLIXIMAB [Suspect]
     Active Substance: INFLIXIMAB
     Indication: Inflammatory bowel disease
     Route: 041
     Dates: start: 20031118, end: 20130322
  2. ENTYVIO [Concomitant]
     Active Substance: VEDOLIZUMAB
     Dates: start: 20141017, end: 20180314
  3. ENTYVIO [Concomitant]
     Active Substance: VEDOLIZUMAB
     Dates: start: 20200201

REACTIONS (2)
  - Abortion spontaneous [Recovered/Resolved]
  - Abortion spontaneous [Recovered/Resolved]

NARRATIVE: CASE EVENT DATE: 20220226
